FAERS Safety Report 11917751 (Version 1)
Quarter: 2016Q1

REPORT INFORMATION
  Report Type: Spontaneous
  Country: US (occurrence: US)
  Receive Date: 20160114
  Receipt Date: 20160114
  Transmission Date: 20160526
  Serious: Yes (Hospitalization)
  Sender: FDA-Public Use
  Company Number: US-FRI-1000082080

PATIENT
  Age: 88 Year
  Sex: Male
  Weight: 77.27 kg

DRUGS (14)
  1. ATIVAN [Concomitant]
     Active Substance: LORAZEPAM
  2. FINASTERIDE. [Concomitant]
     Active Substance: FINASTERIDE
     Dosage: 5MG
     Dates: end: 20151219
  3. RAMIPRIL. [Concomitant]
     Active Substance: RAMIPRIL
     Dosage: 5MG
     Dates: end: 20151219
  4. VITAMIN B12 [Concomitant]
     Active Substance: CYANOCOBALAMIN
     Dates: end: 20151219
  5. CRANBERRY. [Concomitant]
     Active Substance: CRANBERRY
  6. NAMENDA XR [Suspect]
     Active Substance: MEMANTINE HYDROCHLORIDE
     Indication: DEMENTIA ALZHEIMER^S TYPE
     Dosage: 28MG
     Route: 048
     Dates: end: 20151219
  7. PRAVASTATIN [Concomitant]
     Active Substance: PRAVASTATIN\PRAVASTATIN SODIUM
     Dosage: 40MG
     Dates: end: 20151219
  8. ASPIRIN. [Concomitant]
     Active Substance: ASPIRIN
     Dosage: 81MG
     Dates: end: 20151219
  9. CENTRUM SENIOR [Concomitant]
     Dates: end: 20151219
  10. FISH OIL [Concomitant]
     Active Substance: FISH OIL
     Dosage: 3000MG
     Dates: end: 20151219
  11. MORPHINE [Concomitant]
     Active Substance: MORPHINE
  12. EXELON [Concomitant]
     Active Substance: RIVASTIGMINE TARTRATE
     Route: 062
     Dates: end: 20151219
  13. TIMOLOL. [Concomitant]
     Active Substance: TIMOLOL
     Indication: GLAUCOMA
     Route: 047
     Dates: end: 20151219
  14. LUMIGAN [Concomitant]
     Active Substance: BIMATOPROST
     Indication: GLAUCOMA
     Route: 047
     Dates: end: 20151219

REACTIONS (4)
  - Blood iron decreased [Unknown]
  - Cystitis [Unknown]
  - Haematemesis [Unknown]
  - Renal disorder [Unknown]

NARRATIVE: CASE EVENT DATE: 20151128
